FAERS Safety Report 8372628-8 (Version None)
Quarter: 2012Q2

REPORT INFORMATION
  Report Type: 
  Country: None (occurrence: None)
  Receive Date: 20120521
  Receipt Date: 20120515
  Transmission Date: 20120825
  Serious: Yes (Other)
  Sender: FDA-Public Use
  Company Number: PHHY2012BR024059

PATIENT
  Sex: Female
  Weight: 46 kg

DRUGS (5)
  1. PREVENCORT [Concomitant]
     Indication: CARDIAC DISORDER
     Dosage: 1 DF, DAILY
  2. VASTAREL [Concomitant]
     Dosage: 1 DF, QD
  3. EXELON [Suspect]
     Indication: MEMORY IMPAIRMENT
     Dosage: 4.6 MG 1 PATCH DAILY
     Route: 062
     Dates: end: 20120401
  4. PRESSAT [Concomitant]
     Indication: HYPERTENSION
     Dosage: 1 DF, QD
  5. EXELON [Suspect]
     Indication: DEMENTIA ALZHEIMER'S TYPE

REACTIONS (6)
  - GAMMA-GLUTAMYLTRANSFERASE INCREASED [None]
  - SPLEEN DISORDER [None]
  - ASPARTATE AMINOTRANSFERASE INCREASED [None]
  - ABDOMINAL PAIN [None]
  - ALANINE AMINOTRANSFERASE INCREASED [None]
  - MEMORY IMPAIRMENT [None]
